FAERS Safety Report 15663037 (Version 2)
Quarter: 2018Q4

REPORT INFORMATION
  Report Type: Spontaneous
  Country: US (occurrence: US)
  Receive Date: 20181127
  Receipt Date: 20181207
  Transmission Date: 20190205
  Serious: No
  Sender: FDA-Public Use
  Company Number: US-SA-2018SA322211

PATIENT
  Age: 62 Year
  Sex: Female

DRUGS (1)
  1. LANTUS SOLOSTAR [Suspect]
     Active Substance: INSULIN GLARGINE
     Dosage: 28 IU, QD

REACTIONS (3)
  - Wrong technique in product usage process [Unknown]
  - Device operational issue [Unknown]
  - Product dose omission [Unknown]
